FAERS Safety Report 8900140 (Version 1)
Quarter: 2012Q4

REPORT INFORMATION
  Report Type: 
  Country: GB (occurrence: GB)
  Receive Date: 20121109
  Receipt Date: 20121109
  Transmission Date: 20130627
  Serious: Yes (Death, Other)
  Sender: FDA-Public Use
  Company Number: GB-EISAI INC-E7389-03216-SPO-GB

PATIENT
  Sex: Female

DRUGS (1)
  1. HALAVEN [Suspect]
     Dosage: UNKNOWN

REACTIONS (3)
  - Death [Fatal]
  - Mucosal inflammation [Unknown]
  - Neutropenic sepsis [Unknown]
